FAERS Safety Report 4394984-8 (Version None)
Quarter: 2004Q3

REPORT INFORMATION
  Report Type: 
  Country: None (occurrence: None)
  Receive Date: 20040706
  Receipt Date: 20040624
  Transmission Date: 20050211
  Serious: Yes (Life-Threatening, Hospitalization, Other)
  Sender: FDA-Public Use
  Company Number: 2004016746

PATIENT
  Age: 82 Year
  Sex: Male

DRUGS (6)
  1. VFEND [Suspect]
     Indication: BRONCHOPULMONARY ASPERGILLOSIS
     Dosage: 400 GM (200 MG, 2 IN 1 D)
     Dates: start: 20040201
  2. TORSEMIDE [Concomitant]
  3. DIGITOXIN TAB [Concomitant]
  4. PANTOPRAZOLE SODIUM [Concomitant]
  5. SYMBICORT TURBHHALER ^DRACO^ (BUDESONIDE, FORMOTEROL FUMARATE) [Concomitant]
  6. PHENPROCOUMON (PHENPROCOUMON) [Concomitant]

REACTIONS (13)
  - ALANINE AMINOTRANSFERASE INCREASED [None]
  - ANOREXIA [None]
  - ASPARTATE AMINOTRANSFERASE INCREASED [None]
  - BLOOD LACTATE DEHYDROGENASE INCREASED [None]
  - BLOOD URIC ACID INCREASED [None]
  - CARDIAC ARREST [None]
  - CONVULSION [None]
  - DEHYDRATION [None]
  - GAMMA-GLUTAMYLTRANSFERASE INCREASED [None]
  - HYPERKALAEMIA [None]
  - NAUSEA [None]
  - RENAL FAILURE ACUTE [None]
  - RETCHING [None]
